FAERS Safety Report 8888506 (Version 2)
Quarter: 2012Q4

REPORT INFORMATION
  Report Type: 
  Country: NL (occurrence: NL)
  Receive Date: 20121106
  Receipt Date: 20121205
  Transmission Date: 20130627
  Serious: Yes (Hospitalization)
  Sender: FDA-Public Use
  Company Number: NL-B.I. PHARMACEUTICALS,INC./RIDGEFIELD-2012-NL-00459NL

PATIENT
  Sex: Male
  Weight: 10 kg

DRUGS (1)
  1. PRADAXA [Suspect]
     Route: 048

REACTIONS (2)
  - Drug administered to patient of inappropriate age [Recovered/Resolved]
  - Activated partial thromboplastin time prolonged [Recovered/Resolved]
